FAERS Safety Report 17213198 (Version 1)
Quarter: 2019Q4

REPORT INFORMATION
  Report Type: Spontaneous
  Country: CN (occurrence: CN)
  Receive Date: 20191230
  Receipt Date: 20191230
  Transmission Date: 20200122
  Serious: Yes (Life-Threatening, Other)
  Sender: FDA-Public Use
  Company Number: CN-ACCORD-168049

PATIENT
  Age: 49 Year
  Sex: Female

DRUGS (4)
  1. ETOPOSIDE. [Suspect]
     Active Substance: ETOPOSIDE
     Indication: SMALL CELL CARCINOMA OF THE CERVIX
     Dates: start: 20160817
  2. NEDAPLATIN [Suspect]
     Active Substance: NEDAPLATIN
     Indication: SMALL CELL CARCINOMA OF THE CERVIX
     Dates: start: 20160817
  3. CISPLATIN. [Suspect]
     Active Substance: CISPLATIN
     Indication: SMALL CELL CARCINOMA OF THE CERVIX
     Dates: start: 20160817
  4. PACLITAXEL. [Suspect]
     Active Substance: PACLITAXEL
     Indication: SMALL CELL CARCINOMA OF THE CERVIX
     Dates: start: 20160817

REACTIONS (6)
  - Vomiting [Unknown]
  - Nausea [Unknown]
  - Fatigue [Unknown]
  - Abdominal pain [Unknown]
  - Drug intolerance [Unknown]
  - Bone marrow failure [Unknown]

NARRATIVE: CASE EVENT DATE: 2016
